FAERS Safety Report 25316360 (Version 3)
Quarter: 2025Q2

REPORT INFORMATION
  Report Type: Report from Study
  Country: CA (occurrence: CA)
  Receive Date: 20250515
  Receipt Date: 20250620
  Transmission Date: 20250716
  Serious: Yes (Other)
  Sender: TAKEDA
  Company Number: CA-TAKEDA-2025TUS045014

PATIENT
  Age: 67 Year
  Sex: Female
  Weight: 65 kg

DRUGS (12)
  1. HUMAN IMMUNOGLOBULIN G [Suspect]
     Active Substance: HUMAN IMMUNOGLOBULIN G
     Indication: Primary immunodeficiency syndrome
     Dosage: 6 GRAM, 1/WEEK
     Dates: start: 20201209
  2. HUMAN IMMUNOGLOBULIN G [Suspect]
     Active Substance: HUMAN IMMUNOGLOBULIN G
     Dosage: 6 GRAM, 1/WEEK
  3. HUMAN IMMUNOGLOBULIN G [Suspect]
     Active Substance: HUMAN IMMUNOGLOBULIN G
     Dosage: 6 GRAM, 1/WEEK
  4. HUMAN IMMUNOGLOBULIN G [Suspect]
     Active Substance: HUMAN IMMUNOGLOBULIN G
     Dosage: 6 GRAM, 1/WEEK
  5. HUMAN IMMUNOGLOBULIN G [Suspect]
     Active Substance: HUMAN IMMUNOGLOBULIN G
     Dosage: 8 GRAM, 1/WEEK
  6. HUMAN IMMUNOGLOBULIN G [Suspect]
     Active Substance: HUMAN IMMUNOGLOBULIN G
     Dosage: UNK UNK, 1/WEEK
  7. HUMAN IMMUNOGLOBULIN G [Suspect]
     Active Substance: HUMAN IMMUNOGLOBULIN G
     Dosage: 8 GRAM, 1/WEEK
  8. HUMAN IMMUNOGLOBULIN G [Suspect]
     Active Substance: HUMAN IMMUNOGLOBULIN G
     Dosage: 8 GRAM, 1/WEEK
  9. HUMAN IMMUNOGLOBULIN G [Suspect]
     Active Substance: HUMAN IMMUNOGLOBULIN G
     Dosage: 8 GRAM, 1/WEEK
  10. HUMAN IMMUNOGLOBULIN G [Suspect]
     Active Substance: HUMAN IMMUNOGLOBULIN G
     Dosage: 8 GRAM, 1/WEEK
  11. POTASSIUM [Concomitant]
     Active Substance: POTASSIUM
  12. SLOW K [Concomitant]
     Active Substance: POTASSIUM CHLORIDE

REACTIONS (19)
  - Arthritis [Recovered/Resolved]
  - Nephropathy [Not Recovered/Not Resolved]
  - Loss of control of legs [Unknown]
  - Blood potassium increased [Recovered/Resolved]
  - Cerebrovascular accident [Recovered/Resolved]
  - Blood pressure increased [Recovered/Resolved]
  - Malaise [Recovered/Resolved]
  - Limb mass [Unknown]
  - Drug ineffective [Not Recovered/Not Resolved]
  - Needle issue [Unknown]
  - Illness [Unknown]
  - Infusion site discharge [Unknown]
  - Peripheral swelling [Recovering/Resolving]
  - Incorrect dose administered [Unknown]
  - Inappropriate schedule of product administration [Recovered/Resolved]
  - Infusion site discolouration [Recovering/Resolving]
  - Back pain [Unknown]
  - Fatigue [Unknown]
  - Headache [Unknown]

NARRATIVE: CASE EVENT DATE: 20201201
